FAERS Safety Report 21732750 (Version 3)
Quarter: 2023Q1

REPORT INFORMATION
  Report Type: Spontaneous
  Country: US (occurrence: US)
  Receive Date: 20221215
  Receipt Date: 20230220
  Transmission Date: 20230417
  Serious: Yes (Other)
  Sender: FDA-Public Use
  Company Number: US-BRISTOL-MYERS SQUIBB COMPANY-2022-152015

PATIENT
  Age: 58 Year
  Sex: Female

DRUGS (2)
  1. REVLIMID [Suspect]
     Active Substance: LENALIDOMIDE
     Indication: Plasma cell myeloma
     Route: 048
     Dates: start: 20220823
  2. REVLIMID [Suspect]
     Active Substance: LENALIDOMIDE
     Dosage: THREE TIMES A WEEK
     Route: 048
     Dates: start: 20220825

REACTIONS (8)
  - Rash [Unknown]
  - Tremor [Unknown]
  - Vertigo [Unknown]
  - Pain [Unknown]
  - Dacryocanaliculitis [Unknown]
  - Off label use [Unknown]
  - Conjunctivitis [Unknown]
  - Viral infection [Recovering/Resolving]
